FAERS Safety Report 12765919 (Version 6)
Quarter: 2017Q2

REPORT INFORMATION
  Report Type: Report from Study
  Country: US (occurrence: US)
  Receive Date: 20160921
  Receipt Date: 20170526
  Transmission Date: 20170830
  Serious: Yes (Hospitalization, Other)
  Sender: FDA-Public Use
  Company Number: PHHY2016US118072

PATIENT
  Age: 6 Year
  Sex: Female
  Weight: 20.7 kg

DRUGS (12)
  1. TOBRAMYCIN. [Suspect]
     Active Substance: TOBRAMYCIN
     Indication: PSEUDOMONAS INFECTION
     Dosage: 300 OT, BID
     Route: 055
     Dates: start: 20160623, end: 20160721
  2. TOBRAMYCIN. [Suspect]
     Active Substance: TOBRAMYCIN
     Dosage: 300 OT, BID
     Route: 055
     Dates: start: 20161003, end: 20161031
  3. TOBRAMYCIN. [Suspect]
     Active Substance: TOBRAMYCIN
     Dosage: 300 OT, BID
     Route: 055
     Dates: start: 20161130, end: 20161228
  4. CLINDAMYCIN. [Concomitant]
     Active Substance: CLINDAMYCIN
     Indication: FUNGAL INFECTION
     Route: 042
     Dates: start: 20160902, end: 20160909
  5. TOBRAMYCIN. [Suspect]
     Active Substance: TOBRAMYCIN
     Indication: FUNGAL INFECTION
     Dosage: 300 OT, BID
     Route: 055
     Dates: start: 20160820, end: 20160910
  6. TOBRAMYCIN. [Suspect]
     Active Substance: TOBRAMYCIN
     Dosage: 300 OT, BID
     Route: 055
     Dates: start: 20170502
  7. CEFTAZ [Concomitant]
     Indication: FUNGAL INFECTION
     Route: 042
     Dates: start: 20160822, end: 20160905
  8. ALBUTEROL. [Concomitant]
     Active Substance: ALBUTEROL
     Indication: BRONCHOSPASM
     Dosage: QID
     Route: 055
     Dates: start: 20160908, end: 20160909
  9. BACTRIM [Concomitant]
     Active Substance: SULFAMETHOXAZOLE\TRIMETHOPRIM
     Indication: FUNGAL INFECTION
     Dosage: BID
     Route: 042
     Dates: start: 20160905, end: 20160909
  10. TOBRAMYCIN. [Suspect]
     Active Substance: TOBRAMYCIN
     Indication: CYSTIC FIBROSIS LUNG
     Dosage: 300 OT, BID
     Route: 055
     Dates: start: 20160426, end: 20160524
  11. TOBRAMYCIN. [Suspect]
     Active Substance: TOBRAMYCIN
     Dosage: 300 OT, BID
     Route: 055
     Dates: start: 20170321, end: 20170417
  12. BETHKIS [Suspect]
     Active Substance: TOBRAMYCIN
     Indication: PRODUCT USED FOR UNKNOWN INDICATION
     Dosage: 300 OT, BID
     Route: 065
     Dates: start: 20170125, end: 20170222

REACTIONS (8)
  - Infective pulmonary exacerbation of cystic fibrosis [Recovered/Resolved]
  - Asthma [Recovered/Resolved]
  - Bronchiectasis [Unknown]
  - Infective pulmonary exacerbation of cystic fibrosis [Recovered/Resolved]
  - Pyrexia [Recovered/Resolved]
  - Infective pulmonary exacerbation of cystic fibrosis [Recovered/Resolved]
  - Infective pulmonary exacerbation of cystic fibrosis [Recovered/Resolved]
  - Asthma [Recovered/Resolved]

NARRATIVE: CASE EVENT DATE: 20160518
